FAERS Safety Report 18997218 (Version 1)
Quarter: 2021Q1

REPORT INFORMATION
  Report Type: Spontaneous
  Country: US (occurrence: US)
  Receive Date: 20210311
  Receipt Date: 20210311
  Transmission Date: 20210420
  Serious: Yes (Death)
  Sender: FDA-Public Use
  Company Number: None

PATIENT
  Age: 90 Year
  Sex: Male

DRUGS (16)
  1. DIGOXIN 0.25MG [Concomitant]
  2. VASCEPA [Concomitant]
     Active Substance: ICOSAPENT ETHYL
  3. LATANAPROST 0.005% [Concomitant]
  4. FENOFIBRATE 134MG [Concomitant]
     Active Substance: FENOFIBRATE
  5. NOVOLOG [Concomitant]
     Active Substance: INSULIN ASPART
  6. BRIMODIDINE 0.15% [Concomitant]
  7. CARBIDOPA/LEVODOPA 25?100MG [Concomitant]
  8. RISPERIDONE 0.25MG [Concomitant]
     Active Substance: RISPERIDONE
  9. NUPLAZID [Suspect]
     Active Substance: PIMAVANSERIN TARTRATE
     Indication: PARKINSON^S DISEASE
     Route: 048
     Dates: start: 20190813, end: 20210310
  10. ROSUVASTATIN 10MG [Concomitant]
     Active Substance: ROSUVASTATIN
  11. OMEPRAZOLE 40MG [Concomitant]
     Active Substance: OMEPRAZOLE
  12. MULTIVITAMIN [Concomitant]
     Active Substance: VITAMINS
  13. GABAPENTIN 400MG [Concomitant]
     Active Substance: GABAPENTIN
  14. WARFARIN 1MG [Concomitant]
  15. TAMSULOSIN 0.4MG [Concomitant]
     Active Substance: TAMSULOSIN
  16. LANTUS [Concomitant]
     Active Substance: INSULIN GLARGINE

REACTIONS (1)
  - Death [None]

NARRATIVE: CASE EVENT DATE: 20210310
